FAERS Safety Report 21844963 (Version 1)
Quarter: 2023Q1

REPORT INFORMATION
  Report Type: Report from Study
  Country: US (occurrence: US)
  Receive Date: 20230110
  Receipt Date: 20230110
  Transmission Date: 20230417
  Serious: No
  Sender: FDA-Public Use
  Company Number: US-ABBVIE-4229843

PATIENT
  Sex: Female

DRUGS (4)
  1. HUMIRA [Suspect]
     Active Substance: ADALIMUMAB
     Indication: Hidradenitis
     Route: 058
  2. AZITHROMYCIN [Concomitant]
     Active Substance: AZITHROMYCIN
     Indication: Hidradenitis
     Route: 048
  3. Moderna [Concomitant]
     Indication: COVID-19 immunisation
     Dosage: COVID VACCINE
     Route: 030
  4. Moderna [Concomitant]
     Indication: COVID-19 immunisation
     Dosage: COVID BOOSTER
     Route: 030

REACTIONS (2)
  - Irritable bowel syndrome [Not Recovered/Not Resolved]
  - Adverse drug reaction [Not Recovered/Not Resolved]
